FAERS Safety Report 10375451 (Version 1)
Quarter: 2014Q1

REPORT INFORMATION
  Report Type: Spontaneous
  Country: US (occurrence: None)
  Receive Date: 20140306
  Receipt Date: 20140306
  Transmission Date: 20141002
  Serious: Yes (Hospitalization)
  Sender: FDA-Public Use
  Company Number: 163-21880-13010834

PATIENT
  Age: 70 Year
  Sex: Female
  Weight: 43.1 kg

DRUGS (1)
  1. REVLIMID (LENALIDOMIDE) (5 MILLIGRAM, CAPSULES) [Suspect]
     Indication: PLASMA CELL MYELOMA
     Dosage: 5MG, 1 IN 1D, PO
     Dates: start: 20120809

REACTIONS (2)
  - Pneumonia [None]
  - Diarrhoea [None]
